FAERS Safety Report 8497635-6 (Version None)
Quarter: 2012Q3

REPORT INFORMATION
  Report Type: 
  Country: None (occurrence: None)
  Receive Date: 20120709
  Receipt Date: 20120614
  Transmission Date: 20120928
  Serious: No
  Sender: FDA-Public Use
  Company Number: US-AMGEN-USASP2012018624

PATIENT
  Age: 63 Year
  Sex: Female

DRUGS (2)
  1. ENBREL [Suspect]
     Indication: PRODUCT USED FOR UNKNOWN INDICATION
     Dosage: 50 MG, UNK
  2. ENBREL [Suspect]

REACTIONS (12)
  - OESOPHAGEAL PAIN [None]
  - PAIN [None]
  - GALLBLADDER DISORDER [None]
  - INFLAMMATION [None]
  - NAUSEA [None]
  - VOMITING [None]
  - GASTROOESOPHAGEAL REFLUX DISEASE [None]
  - FIBRIN D DIMER INCREASED [None]
  - HEPATIC ENZYME INCREASED [None]
  - ORAL CANDIDIASIS [None]
  - ARTHROPATHY [None]
  - IRRITABLE BOWEL SYNDROME [None]
